FAERS Safety Report 4798691-9 (Version None)
Quarter: 2005Q4

REPORT INFORMATION
  Report Type: 
  Country: None (occurrence: None)
  Receive Date: 20051014
  Receipt Date: 20051007
  Transmission Date: 20060501
  Serious: Yes (Hospitalization)
  Sender: FDA-Public Use
  Company Number: US-JNJFOC-20050904417

PATIENT
  Sex: Female

DRUGS (3)
  1. RISPERIDONE [Suspect]
     Indication: SCHIZOPHRENIA
     Route: 048
  2. FLUVOXAMINE MALEATE [Concomitant]
  3. ALPRAZOLAM [Concomitant]

REACTIONS (4)
  - ABDOMINAL PAIN UPPER [None]
  - ASTHENIA [None]
  - PSYCHOTIC DISORDER [None]
  - VOMITING [None]
